FAERS Safety Report 5318144-9 (Version None)
Quarter: 2007Q2

REPORT INFORMATION
  Report Type: 
  Country: None (occurrence: None)
  Receive Date: 20070507
  Receipt Date: 20070424
  Transmission Date: 20071010
  Serious: Yes (Other)
  Sender: FDA-Public Use
  Company Number: JP-ROCHE-491411

PATIENT
  Age: 8 Year
  Sex: Female
  Weight: 27 kg

DRUGS (5)
  1. TAMIFLU [Suspect]
     Dosage: FORM: DRY SYRUP.
     Route: 048
     Dates: start: 20070313, end: 20070313
  2. ASVERIN [Concomitant]
     Route: 048
     Dates: start: 20070313
  3. CALONAL [Concomitant]
     Dosage: FORM: FINE GRANULE.TAKEN AS NEEDED:260MG
     Route: 048
     Dates: start: 20070313
  4. MUCODYNE [Concomitant]
     Route: 048
     Dates: start: 20070313
  5. PERIACTIN [Concomitant]
     Route: 048
     Dates: start: 20070313

REACTIONS (1)
  - CONVULSION [None]
